FAERS Safety Report 12948135 (Version 2)
Quarter: 2016Q4

REPORT INFORMATION
  Report Type: Report from Study
  Country: US (occurrence: US)
  Receive Date: 20161117
  Receipt Date: 20161117
  Transmission Date: 20170207
  Serious: Yes (Hospitalization, Other)
  Sender: FDA-Public Use
  Company Number: US-BIOGEN-2016BI00317058

PATIENT
  Sex: Female

DRUGS (1)
  1. TECFIDERA [Suspect]
     Active Substance: DIMETHYL FUMARATE
     Indication: MULTIPLE SCLEROSIS
     Route: 065

REACTIONS (6)
  - Paraesthesia [Recovered/Resolved]
  - Ankle fracture [Recovered/Resolved]
  - Lower limb fracture [Recovered/Resolved]
  - Visual acuity reduced [Not Recovered/Not Resolved]
  - Fall [Recovered/Resolved]
  - Limb operation [Recovered/Resolved]
